FAERS Safety Report 12119080 (Version 3)
Quarter: 2016Q2

REPORT INFORMATION
  Report Type: Other
  Country: FR (occurrence: FR)
  Receive Date: 20160226
  Receipt Date: 20160602
  Transmission Date: 20160815
  Serious: Yes (Hospitalization, Other)
  Sender: FDA-Public Use
  Company Number: FR-SYMPLMED PHARMACEUTICALS-2016SYMPLMED000150

PATIENT

DRUGS (5)
  1. OFLOCET                            /00731801/ [Concomitant]
     Active Substance: OFLOXACIN
     Indication: PROPHYLAXIS
     Dosage: 400 MG, SINGLE
     Dates: start: 20160106, end: 20160106
  2. LIDOCAINE HYDROCHLORIDE. [Concomitant]
     Active Substance: LIDOCAINE HYDROCHLORIDE
     Indication: LOCAL ANAESTHESIA
     Dosage: UNK, ONCE
     Dates: start: 20160106, end: 20160106
  3. BISOPROLOL FUMARATE. [Concomitant]
     Active Substance: BISOPROLOL FUMARATE
     Indication: HYPERTENSION
     Dosage: 10 MG, UNK
  4. KARDEGIC [Concomitant]
     Active Substance: ASPIRIN LYSINE
     Indication: HYPERTENSION
     Dosage: 160 MG, UNK
  5. COVERAM [Suspect]
     Active Substance: AMLODIPINE\PERINDOPRIL
     Indication: HYPERTENSION
     Dosage: 10MG/10MG TABLET, UNK
     Route: 048
     Dates: end: 201602

REACTIONS (9)
  - Hypoalbuminaemia [Unknown]
  - Ischaemic stroke [Recovered/Resolved]
  - Blood lactate dehydrogenase increased [Unknown]
  - Eczema [Recovered/Resolved]
  - Lymphopenia [Unknown]
  - Drug eruption [Unknown]
  - Acute kidney injury [Unknown]
  - Prostate cancer [Unknown]
  - Eosinophilia [Recovered/Resolved]

NARRATIVE: CASE EVENT DATE: 2014
